FAERS Safety Report 9874718 (Version 1)
Quarter: 2014Q1

REPORT INFORMATION
  Report Type: Spontaneous
  Country: US (occurrence: None)
  Receive Date: 20140205
  Receipt Date: 20140205
  Transmission Date: 20141002
  Serious: No
  Sender: FDA-Public Use
  Company Number: None

PATIENT
  Age: 54 Year
  Sex: Female
  Weight: 65.77 kg

DRUGS (2)
  1. COMBIPATCH [Suspect]
     Indication: MENOPAUSE
     Route: 061
     Dates: start: 201006
  2. LISINOPRIL [Concomitant]

REACTIONS (4)
  - Application site rash [None]
  - Application site pruritus [None]
  - Application site irritation [None]
  - Product quality issue [None]
